FAERS Safety Report 5227358-8 (Version None)
Quarter: 2007Q1

REPORT INFORMATION
  Report Type: 
  Country: None (occurrence: None)
  Receive Date: 20070130
  Receipt Date: 20070117
  Transmission Date: 20070707
  Serious: Yes (Death, Hospitalization, Other)
  Sender: FDA-Public Use
  Company Number: 230394K07USA

PATIENT
  Age: 57 Year
  Sex: Female

DRUGS (8)
  1. REBIF [Suspect]
     Indication: MULTIPLE SCLEROSIS
     Dates: start: 20050718, end: 20070117
  2. METHADONE HCL [Concomitant]
  3. TRILEPTAL [Concomitant]
  4. NEURONTIN [Concomitant]
  5. PREDNISONE [Concomitant]
  6. SINGULAIR [Concomitant]
  7. ALBUTEROL [Concomitant]
  8. NORVASC [Concomitant]

REACTIONS (1)
  - ASTHMA [None]
